FAERS Safety Report 6429239-0 (Version None)
Quarter: 2009Q4

REPORT INFORMATION
  Report Type: 
  Country: None (occurrence: None)
  Receive Date: 20091105
  Receipt Date: 20091026
  Transmission Date: 20100525
  Serious: Yes (Hospitalization)
  Sender: FDA-Public Use
  Company Number: PHHY2009GB23430

PATIENT
  Sex: Male

DRUGS (3)
  1. CLOZARIL [Suspect]
     Indication: SCHIZOPHRENIA
     Dosage: UNK
     Dates: start: 20080514
  2. CLOZARIL [Suspect]
     Dosage: UNK
     Dates: start: 20090601
  3. CLOZARIL [Suspect]
     Dosage: 20 EXTRA TABLET IN NIGHT
     Dates: start: 20091020

REACTIONS (1)
  - OVERDOSE [None]
